FAERS Safety Report 6180563-9 (Version None)
Quarter: 2009Q2

REPORT INFORMATION
  Report Type: 
  Country: None (occurrence: None)
  Receive Date: 20090504
  Receipt Date: 20090504
  Transmission Date: 20091009
  Serious: Yes (Disabling)
  Sender: FDA-Public Use
  Company Number: None

PATIENT
  Age: 53 Year
  Sex: Female
  Weight: 49.4421 kg

DRUGS (3)
  1. COPAXONE [Suspect]
     Indication: RELAPSING-REMITTING MULTIPLE SCLEROSIS
     Dosage: 1 DAILY SUBCUTANE
     Route: 058
     Dates: start: 20090304, end: 20090320
  2. VALIUM [Concomitant]
  3. LYRICA [Concomitant]

REACTIONS (4)
  - CHILLS [None]
  - HEADACHE [None]
  - HYPERSOMNIA [None]
  - PYREXIA [None]
